FAERS Safety Report 11201304 (Version 1)
Quarter: 2015Q2

REPORT INFORMATION
  Report Type: Spontaneous
  Country: IT (occurrence: IT)
  Receive Date: 20150619
  Receipt Date: 20150619
  Transmission Date: 20150821
  Serious: Yes (Hospitalization)
  Sender: FDA-Public Use
  Company Number: IT-HOSPIRA-2643766

PATIENT
  Age: 59 Year
  Sex: Female

DRUGS (4)
  1. MITOXANTRONE [Suspect]
     Active Substance: MITOXANTRONE HYDROCHLORIDE
     Indication: LYMPHOPROLIFERATIVE DISORDER
     Dosage: DAILY
     Route: 040
     Dates: start: 20091204, end: 20091206
  2. DEXAMETHASONE. [Concomitant]
     Active Substance: DEXAMETHASONE
     Indication: PRODUCT USED FOR UNKNOWN INDICATION
     Route: 040
     Dates: start: 20091204, end: 20091206
  3. RITUXIMAB [Concomitant]
     Active Substance: RITUXIMAB
     Indication: PRODUCT USED FOR UNKNOWN INDICATION
     Route: 041
     Dates: start: 20091216, end: 20091216
  4. CYTARABINE. [Suspect]
     Active Substance: CYTARABINE
     Indication: LYMPHOPROLIFERATIVE DISORDER
     Dosage: DAILY
     Route: 041
     Dates: start: 20091204, end: 20091206

REACTIONS (2)
  - Neutropenia [Recovered/Resolved]
  - Staphylococcal sepsis [Recovered/Resolved]

NARRATIVE: CASE EVENT DATE: 20091216
